FAERS Safety Report 10398178 (Version 1)
Quarter: 2014Q3

REPORT INFORMATION
  Report Type: Report from Study
  Country: US (occurrence: US)
  Receive Date: 20140821
  Receipt Date: 20140821
  Transmission Date: 20150326
  Serious: Yes (Other)
  Sender: FDA-Public Use
  Company Number: US-ROCHE-1452072

PATIENT
  Age: 68 Year
  Sex: Female

DRUGS (2)
  1. MYCOPHENOLATE MOFETIL. [Suspect]
     Active Substance: MYCOPHENOLATE MOFETIL
     Indication: GRANULOMATOSIS WITH POLYANGIITIS
     Route: 065
  2. MYCOPHENOLATE MOFETIL. [Suspect]
     Active Substance: MYCOPHENOLATE MOFETIL
     Indication: MICROSCOPIC POLYANGIITIS

REACTIONS (12)
  - Blood creatinine increased [Unknown]
  - Glomerulonephritis [Unknown]
  - Decreased appetite [Unknown]
  - Weight decreased [Unknown]
  - Asthenia [Unknown]
  - Fatigue [Unknown]
  - Antineutrophil cytoplasmic antibody increased [Unknown]
  - Haematuria [Unknown]
  - Sinusitis [Unknown]
  - Platelet count increased [Unknown]
  - Night sweats [Unknown]
  - Haemoglobin decreased [Unknown]
